FAERS Safety Report 8184945-5 (Version None)
Quarter: 2012Q1

REPORT INFORMATION
  Report Type: 
  Country: None (occurrence: None)
  Receive Date: 20120305
  Receipt Date: 20120228
  Transmission Date: 20120608
  Serious: No
  Sender: FDA-Public Use
  Company Number: JP-GLAXOSMITHKLINE-B0752410A

PATIENT
  Sex: Male
  Weight: 59 kg

DRUGS (9)
  1. PROMACTA [Suspect]
     Indication: IDIOPATHIC THROMBOCYTOPENIC PURPURA
     Dosage: 12.5MG PER DAY
     Route: 048
     Dates: start: 20110203, end: 20110921
  2. ALDACTONE [Concomitant]
     Dosage: 25MG PER DAY
     Route: 048
  3. MECOBALAMIN [Concomitant]
     Dosage: 1500MCG PER DAY
     Route: 048
  4. LANTUS [Concomitant]
     Dosage: 8IU PER DAY
     Route: 058
  5. CRESTOR [Concomitant]
     Dosage: 2.5MG PER DAY
     Route: 048
  6. EPALRESTAT [Concomitant]
     Dosage: 150MG PER DAY
     Route: 048
  7. NOVORAPID [Concomitant]
     Dosage: 24IU PER DAY
     Route: 058
  8. PREDNISOLONE [Concomitant]
     Indication: IDIOPATHIC THROMBOCYTOPENIC PURPURA
     Dosage: 15MG PER DAY
     Route: 048
  9. DIOVAN [Concomitant]
     Dosage: 40MG PER DAY
     Route: 048

REACTIONS (1)
  - NEUTROPHIL COUNT DECREASED [None]
